FAERS Safety Report 12737784 (Version 1)
Quarter: 2016Q3

REPORT INFORMATION
  Report Type: Spontaneous
  Country: US (occurrence: US)
  Receive Date: 20160912
  Receipt Date: 20160912
  Transmission Date: 20161109
  Serious: No
  Sender: FDA-Public Use
  Company Number: US-SA-2016SA119797

PATIENT
  Age: 83 Year
  Sex: Male
  Weight: 88.45 kg

DRUGS (4)
  1. SOLOSTAR [Suspect]
     Active Substance: DEVICE
     Dates: start: 2016
  2. TOUJEO [Suspect]
     Active Substance: INSULIN GLARGINE
     Dosage: DOSE:50 UNIT(S)
     Route: 065
     Dates: start: 2016, end: 2016
  3. TOUJEO [Suspect]
     Active Substance: INSULIN GLARGINE
     Dosage: DOSE:80 UNIT(S)
     Route: 065
     Dates: start: 2016
  4. TOUJEO [Suspect]
     Active Substance: INSULIN GLARGINE
     Dosage: DOSE: 38/40 UNITS
     Route: 065
     Dates: start: 2016, end: 2016

REACTIONS (3)
  - Device issue [Unknown]
  - Blood glucose increased [Unknown]
  - Product use issue [Unknown]
